FAERS Safety Report 5094437-8 (Version None)
Quarter: 2006Q3

REPORT INFORMATION
  Report Type: 
  Country: None (occurrence: None)
  Receive Date: 20060830
  Receipt Date: 20060814
  Transmission Date: 20061208
  Serious: Yes (Other)
  Sender: FDA-Public Use
  Company Number: CA200608002965

PATIENT
  Age: 62 Year
  Sex: Female

DRUGS (17)
  1. FORTEO [Suspect]
     Indication: OSTEOPOROSIS
     Dosage: 20 UG, DAILY (1/D)
     Dates: start: 20060515
  2. FORTEO [Concomitant]
  3. CALCIUM GLUCONATE [Concomitant]
  4. VITAMIN D [Concomitant]
  5. COMBIVENT [Concomitant]
  6. FLOVENT [Concomitant]
  7. SEREVENT [Concomitant]
  8. SINGULAIR [Concomitant]
  9. PAXIL [Concomitant]
  10. SYNTHROID [Concomitant]
  11. RESTORIL [Concomitant]
  12. XANAX [Concomitant]
  13. LASIX (FUROSEMIDE, FUROSEMIDE SODIUM) [Concomitant]
  14. POTASSIUM [Concomitant]
  15. NITROGLYCERIN [Concomitant]
  16. CYANOCOBALAMIN [Concomitant]
  17. FLEXERIL [Concomitant]

REACTIONS (1)
  - LUNG NEOPLASM MALIGNANT [None]
